FAERS Safety Report 17247567 (Version 1)
Quarter: 2020Q1

REPORT INFORMATION
  Report Type: Spontaneous
  Country: US (occurrence: US)
  Receive Date: 20200107
  Receipt Date: 20200107
  Transmission Date: 20200409
  Serious: Yes (Disabling)
  Sender: FDA-Public Use
  Company Number: None

PATIENT
  Age: 65 Year
  Sex: Female
  Weight: 49.5 kg

DRUGS (15)
  1. HUMIRA INJ [Concomitant]
  2. VITAMIN D [Concomitant]
     Active Substance: VITAMIN D NOS
  3. COQ10 [Concomitant]
     Active Substance: UBIDECARENONE
  4. TUMS [Concomitant]
     Active Substance: CALCIUM CARBONATE
  5. MAGNESIUM CITRATE. [Concomitant]
     Active Substance: MAGNESIUM CITRATE
  6. BUPRIOPION XL [Concomitant]
  7. VITAMINS [Concomitant]
     Active Substance: VITAMINS
  8. CLOBETASOL FOAM [Concomitant]
  9. SKYRIZI [Suspect]
     Active Substance: RISANKIZUMAB-RZAA
     Indication: PSORIASIS
     Dosage: ?          OTHER FREQUENCY:EVERY 3 MONTHS;OTHER ROUTE:SUBQ INJECTION?
     Dates: start: 20191126, end: 20191126
  10. IBUPROFEN. [Concomitant]
     Active Substance: IBUPROFEN
  11. CALCITRENE [Concomitant]
     Active Substance: CALCIPOTRIENE
  12. CRESTOR [Concomitant]
     Active Substance: ROSUVASTATIN CALCIUM
  13. LOSARTAN. [Concomitant]
     Active Substance: LOSARTAN
  14. VITAMIN D [Concomitant]
     Active Substance: VITAMIN D NOS
  15. VITAMIN B12 [Concomitant]
     Active Substance: CYANOCOBALAMIN

REACTIONS (16)
  - Fatigue [None]
  - Drug eruption [None]
  - Hypersensitivity [None]
  - Blister [None]
  - Lacrimation increased [None]
  - Photosensitivity reaction [None]
  - Pelvic discomfort [None]
  - Malaise [None]
  - Drug hypersensitivity [None]
  - Diarrhoea [None]
  - Paranasal sinus discomfort [None]
  - Dysphonia [None]
  - Uterine cervical exfoliation [None]
  - Headache [None]
  - Sinusitis [None]
  - Vaginal mucosal blistering [None]

NARRATIVE: CASE EVENT DATE: 20191203
